FAERS Safety Report 19529124 (Version 2)
Quarter: 2022Q2

REPORT INFORMATION
  Report Type: Spontaneous
  Country: CA (occurrence: CA)
  Receive Date: 20210713
  Receipt Date: 20220407
  Transmission Date: 20220721
  Serious: Yes (Hospitalization, Other)
  Sender: FDA-Public Use
  Company Number: CA-SA-SAC20210709000166

PATIENT
  Age: 2 Year
  Sex: Female
  Weight: 15 kg

DRUGS (6)
  1. RANITIDINE [Suspect]
     Active Substance: RANITIDINE
     Dosage: UNK
     Dates: start: 20200111, end: 20200111
  2. BISOPROLOL [Suspect]
     Active Substance: BISOPROLOL
     Dosage: UNK
     Dates: start: 20200111, end: 20200111
  3. DAPSONE [Suspect]
     Active Substance: DAPSONE
     Dosage: UNK
     Dates: start: 20200111, end: 20200111
  4. PERINDOPRIL [Suspect]
     Active Substance: PERINDOPRIL
     Dosage: UNK
     Dates: start: 20200111, end: 20200111
  5. CYANOCOBALAMIN [Suspect]
     Active Substance: CYANOCOBALAMIN
     Dosage: UNK
     Dates: start: 20200111, end: 20200111
  6. VITAMIN E [Suspect]
     Active Substance: .ALPHA.-TOCOPHEROL
     Dosage: UNK
     Dates: start: 20200111, end: 20200111

REACTIONS (2)
  - Accidental poisoning [Recovered/Resolved]
  - Accidental exposure to product by child [Unknown]

NARRATIVE: CASE EVENT DATE: 20200111
